FAERS Safety Report 24891689 (Version 1)
Quarter: 2025Q1

REPORT INFORMATION
  Report Type: Spontaneous
  Country: CN (occurrence: CN)
  Receive Date: 20250127
  Receipt Date: 20250127
  Transmission Date: 20250409
  Serious: Yes (Other)
  Sender: EISAI
  Company Number: CN-Eisai-EC-2025-182638

PATIENT
  Age: 62 Year
  Sex: Male
  Weight: 62 kg

DRUGS (4)
  1. LENVIMA [Suspect]
     Active Substance: LENVATINIB
     Indication: Hepatocellular carcinoma
     Route: 048
     Dates: start: 20240924, end: 20241013
  2. PEMBROLIZUMAB [Concomitant]
     Active Substance: PEMBROLIZUMAB
     Indication: Hepatocellular carcinoma
     Dates: start: 20240924
  3. GLIMEPIRIDO [Concomitant]
     Indication: Hyperglycaemia
     Route: 048
  4. METFORMIN [Concomitant]
     Active Substance: METFORMIN HYDROCHLORIDE
     Indication: Hyperglycaemia
     Route: 048

REACTIONS (3)
  - Immune-mediated myocarditis [Unknown]
  - Platelet count decreased [Unknown]
  - Hyperthyroidism [Unknown]

NARRATIVE: CASE EVENT DATE: 20240101
